FAERS Safety Report 24880750 (Version 1)
Quarter: 2025Q1

REPORT INFORMATION
  Report Type: Spontaneous
  Country: US (occurrence: US)
  Receive Date: 20250123
  Receipt Date: 20250123
  Transmission Date: 20250409
  Serious: Yes (Death, Life-Threatening, Hospitalization, Other)
  Sender: BRISTOL-MYERS SQUIBB COMPANY
  Company Number: US-BRISTOL-MYERS SQUIBB COMPANY-2025-007937

PATIENT
  Age: 83 Year
  Sex: Male

DRUGS (1)
  1. BREYANZI [Suspect]
     Active Substance: LISOCABTAGENE MARALEUCEL
     Indication: Marginal zone lymphoma
     Route: 042
     Dates: start: 20241223

REACTIONS (9)
  - Pulseless electrical activity [Fatal]
  - Atelectasis [Unknown]
  - Muscle haemorrhage [Unknown]
  - Shock haemorrhagic [Fatal]
  - Cytokine release syndrome [Recovered/Resolved]
  - Immune effector cell-associated neurotoxicity syndrome [Recovering/Resolving]
  - Retroperitoneal haematoma [Unknown]
  - Deep vein thrombosis [Unknown]
  - Hypotension [Unknown]

NARRATIVE: CASE EVENT DATE: 20241226
